FAERS Safety Report 20687398 (Version 4)
Quarter: 2022Q2

REPORT INFORMATION
  Report Type: Other
  Country: IE (occurrence: None)
  Receive Date: 20220408
  Receipt Date: 20220502
  Transmission Date: 20220721
  Serious: Yes (Death)
  Sender: FDA-Public Use
  Company Number: IE-ROCHE-3069143

PATIENT
  Sex: Male

DRUGS (1)
  1. PRALSETINIB [Suspect]
     Active Substance: PRALSETINIB
     Indication: Non-small cell lung cancer
     Route: 048
     Dates: start: 20200401, end: 20220419

REACTIONS (1)
  - Death [Fatal]
